FAERS Safety Report 6539040-5 (Version None)
Quarter: 2010Q1

REPORT INFORMATION
  Report Type: 
  Country: None (occurrence: None)
  Receive Date: 20100110
  Receipt Date: 20091223
  Transmission Date: 20100710
  Serious: Yes (Disabling)
  Sender: FDA-Public Use
  Company Number: 2010AL000002

PATIENT
  Age: 61 Year
  Sex: Male

DRUGS (7)
  1. AMLODIPINE BESYLATE [Suspect]
     Indication: HYPERTENSION
     Dosage: 5 MG;QD;PO
     Route: 048
     Dates: start: 20050418, end: 20050424
  2. ATORVASTATIN CALCIUM [Concomitant]
  3. CLOPIDOGREL [Concomitant]
  4. ASPIRIN [Concomitant]
  5. PERINODOPRIL [Concomitant]
  6. TESTOSTERONE [Concomitant]
  7. ROSUVASTATIN [Concomitant]

REACTIONS (3)
  - DIZZINESS [None]
  - ERECTILE DYSFUNCTION [None]
  - LETHARGY [None]
